FAERS Safety Report 5205101-6 (Version None)
Quarter: 2007Q1

REPORT INFORMATION
  Report Type: 
  Country: None (occurrence: None)
  Receive Date: 20070110
  Receipt Date: 20061031
  Transmission Date: 20070707
  Serious: No
  Sender: FDA-Public Use
  Company Number: US-BRISTOL-MYERS SQUIBB COMPANY-13561824

PATIENT
  Age: 41 Year
  Sex: Female
  Weight: 105 kg

DRUGS (4)
  1. ABILIFY [Suspect]
     Indication: BIPOLAR DISORDER
     Dates: start: 20061030
  2. METADATE CD [Concomitant]
  3. STRATTERA [Concomitant]
  4. LORAZEPAM [Concomitant]

REACTIONS (2)
  - MYDRIASIS [None]
  - VISION BLURRED [None]
